FAERS Safety Report 8782836 (Version 2)
Quarter: 2013Q4

REPORT INFORMATION
  Report Type: Spontaneous
  Country: US (occurrence: US)
  Receive Date: 20120913
  Receipt Date: 20131105
  Transmission Date: 20140711
  Serious: Yes (Other)
  Sender: FDA-Public Use
  Company Number: US-009507513-1209USA000477

PATIENT
  Sex: Male

DRUGS (2)
  1. PEGINTRON [Suspect]
     Indication: HEPATITIS C
     Dosage: UNK
     Route: 058
     Dates: start: 19970101, end: 19970701
  2. PEGINTRON [Suspect]
     Dosage: UNK
     Dates: start: 19970228, end: 19970829

REACTIONS (2)
  - Thyroid disorder [Unknown]
  - No adverse event [Unknown]
